FAERS Safety Report 8018737-4 (Version None)
Quarter: 2012Q1

REPORT INFORMATION
  Report Type: 
  Country: None (occurrence: None)
  Receive Date: 20120103
  Receipt Date: 20120103
  Transmission Date: 20120608
  Serious: Yes (Other)
  Sender: FDA-Public Use
  Company Number: None

PATIENT
  Age: 62 Year
  Sex: Female
  Weight: 72.121 kg

DRUGS (1)
  1. LEVAQUIN [Suspect]
     Indication: LUNG INFECTION
     Dosage: 1
     Dates: start: 20110502, end: 20110521

REACTIONS (6)
  - ANXIETY [None]
  - GAIT DISTURBANCE [None]
  - MUSCULOSKELETAL DISORDER [None]
  - PAIN [None]
  - PAIN IN EXTREMITY [None]
  - MYOFASCIAL PAIN SYNDROME [None]
